FAERS Safety Report 10067536 (Version 1)
Quarter: 2014Q2

REPORT INFORMATION
  Report Type: Report from Study
  Country: US (occurrence: US)
  Receive Date: 20140409
  Receipt Date: 20140409
  Transmission Date: 20141212
  Serious: Yes (Other)
  Sender: FDA-Public Use
  Company Number: US-ROCHE-1379618

PATIENT
  Age: 70 Year
  Sex: Female

DRUGS (2)
  1. ALTEPLASE [Suspect]
     Indication: HEMIPARESIS
     Dosage: STANDARD
     Route: 065
  2. ALTEPLASE [Suspect]
     Indication: PARALYSIS

REACTIONS (1)
  - Aortic dissection [Unknown]
